FAERS Safety Report 6357730-4 (Version None)
Quarter: 2009Q3

REPORT INFORMATION
  Report Type: 
  Country: None (occurrence: None)
  Receive Date: 20090916
  Receipt Date: 20090908
  Transmission Date: 20100115
  Serious: Yes (Hospitalization, Other)
  Sender: FDA-Public Use
  Company Number: US-AMGEN-QUU363306

PATIENT
  Sex: Female

DRUGS (2)
  1. ENBREL [Suspect]
     Indication: RHEUMATOID ARTHRITIS
     Route: 058
     Dates: start: 20040225
  2. IMURAN [Concomitant]

REACTIONS (6)
  - CONVULSION [None]
  - FALL [None]
  - ROCKY MOUNTAIN SPOTTED FEVER [None]
  - SEPSIS [None]
  - SPINAL FRACTURE [None]
  - UPPER LIMB FRACTURE [None]
